FAERS Safety Report 24175826 (Version 1)
Quarter: 2024Q3

REPORT INFORMATION
  Report Type: Report from Study
  Country: US (occurrence: US)
  Receive Date: 20240805
  Receipt Date: 20240805
  Transmission Date: 20241016
  Serious: Yes (Other)
  Sender: ABBVIE
  Company Number: US-ABBVIE-5865676

PATIENT
  Sex: Female

DRUGS (3)
  1. VENCLEXTA [Suspect]
     Active Substance: VENETOCLAX
     Indication: Acute myeloid leukaemia (in remission)
     Dosage: STRENGTH: 100 MG,TAKE 1 TABLET BY MOUTH ON DAY1
     Route: 048
  2. VENCLEXTA [Suspect]
     Active Substance: VENETOCLAX
     Indication: Acute myeloid leukaemia (in remission)
     Dosage: STRENGTH: 100 MG,TAKE 2 TABLET BY MOUTH ON DAY2
     Route: 048
  3. VENCLEXTA [Suspect]
     Active Substance: VENETOCLAX
     Indication: Acute myeloid leukaemia (in remission)
     Dosage: STRENGTH: 100 MG,4 TABLETS ONCE DAILY THEREAFTER WITH FOOD AND FULL GLASS OF WATER.
     Route: 048
     Dates: end: 20240606

REACTIONS (1)
  - Transplant [Unknown]
